FAERS Safety Report 18356287 (Version 1)
Quarter: 2020Q4

REPORT INFORMATION
  Report Type: Spontaneous
  Country: US (occurrence: ZA)
  Receive Date: 20201007
  Receipt Date: 20201007
  Transmission Date: 20210114
  Serious: Yes (Death, Other)
  Sender: FDA-Public Use
  Company Number: ZA-GLAXOSMITHKLINE-ZA2020EME199477

PATIENT
  Sex: Female

DRUGS (1)
  1. GRANDPA POWDER [Suspect]
     Active Substance: ACETAMINOPHEN\ASPIRIN\CAFFEINE
     Indication: PRODUCT USED FOR UNKNOWN INDICATION
     Dosage: UNK

REACTIONS (4)
  - Gastrointestinal surgery [Unknown]
  - Gastric ulcer [Unknown]
  - Drug dependence [Fatal]
  - Abdominal pain upper [Unknown]
